FAERS Safety Report 7409934-7 (Version None)
Quarter: 2011Q2

REPORT INFORMATION
  Report Type: 
  Country: None (occurrence: None)
  Receive Date: 20110412
  Receipt Date: 20110331
  Transmission Date: 20111010
  Serious: Yes (Hospitalization, Other)
  Sender: FDA-Public Use
  Company Number: PHHY2011BR27412

PATIENT
  Age: 17 Year
  Sex: Female

DRUGS (1)
  1. MYFORTIC [Suspect]

REACTIONS (3)
  - AGITATION [None]
  - VOMITING [None]
  - INTENTIONAL OVERDOSE [None]
